FAERS Safety Report 6833025-7 (Version None)
Quarter: 2010Q3

REPORT INFORMATION
  Report Type: 
  Country: None (occurrence: None)
  Receive Date: 20100712
  Receipt Date: 20100603
  Transmission Date: 20110219
  Serious: No
  Sender: FDA-Public Use
  Company Number: US-BIOGENIDEC-2010BI018779

PATIENT
  Age: 53 Year
  Sex: Female

DRUGS (2)
  1. AVONEX [Suspect]
     Indication: MULTIPLE SCLEROSIS
     Route: 030
     Dates: start: 20060925, end: 20090301
  2. AVONEX [Suspect]
     Route: 030
     Dates: start: 20091001

REACTIONS (3)
  - BLADDER DISORDER [None]
  - GASTROINTESTINAL DISORDER [None]
  - MULTIPLE SCLEROSIS RELAPSE [None]
